FAERS Safety Report 4914132-2 (Version None)
Quarter: 2006Q1

REPORT INFORMATION
  Report Type: 
  Country: None (occurrence: None)
  Receive Date: 20060113
  Receipt Date: 20051115
  Transmission Date: 20060701
  Serious: No
  Sender: FDA-Public Use
  Company Number: 2005SP004003

PATIENT
  Age: 67 Year
  Sex: Female
  Weight: 71.6683 kg

DRUGS (5)
  1. LUNESTA [Suspect]
     Indication: INSOMNIA
     Dosage: 2 MG; ORAL    3 MG; ORAL
     Route: 048
     Dates: start: 20051101, end: 20051101
  2. LUNESTA [Suspect]
     Indication: INSOMNIA
     Dosage: 2 MG; ORAL    3 MG; ORAL
     Route: 048
     Dates: start: 20051108, end: 20051101
  3. BENICAR [Concomitant]
  4. CLARITIN [Concomitant]
  5. THYROXIN T3 [Concomitant]

REACTIONS (4)
  - DIZZINESS [None]
  - DRUG INEFFECTIVE [None]
  - DYSGEUSIA [None]
  - INSOMNIA [None]
